FAERS Safety Report 10408801 (Version 1)
Quarter: 2014Q3

REPORT INFORMATION
  Report Type: Spontaneous
  Country: CN (occurrence: None)
  Receive Date: 20140822
  Receipt Date: 20140822
  Transmission Date: 20150326
  Serious: Yes (Death, Other)
  Sender: FDA-Public Use
  Company Number: CN-ZYDUS-004247

PATIENT
  Age: 29 Year
  Sex: Male

DRUGS (8)
  1. GLUTATHIONE(GLUTATHIONE) [Concomitant]
  2. HEPATITIS B IMMUNE  GLOBULIN (HEPATITIS B IMMUNE GLOBULIN) [Concomitant]
  3. ENTECARIVIR(ENTECARVIR) [Concomitant]
  4. WARFARIN (WARFARIN) [Suspect]
     Active Substance: WARFARIN
     Dates: end: 20130328
  5. MAGNESIUM(MAGNESIUM) [Concomitant]
  6. CAPECITABINE (CAPECITABINE) (CAPECITABINE) [Suspect]
     Active Substance: CAPECITABINE
     Dates: end: 20130318
  7. TACROLIMUS (TACROLIMUS) [Suspect]
     Active Substance: TACROLIMUS
     Indication: IMMUNOSUPPRESSANT DRUG THERAPY
     Dosage: 1.50 MG 12.0 HOURS
  8. GANCICLOVIR(GANCICLOVIR) [Concomitant]

REACTIONS (7)
  - Hepatic encephalopathy [None]
  - Aspartate aminotransferase increased [None]
  - Rash [None]
  - Liver injury [None]
  - Alanine aminotransferase increased [None]
  - Coagulopathy [None]
  - Drug interaction [None]

NARRATIVE: CASE EVENT DATE: 2013
